FAERS Safety Report 17910449 (Version 1)
Quarter: 2020Q2

REPORT INFORMATION
  Report Type: Spontaneous
  Country: US (occurrence: US)
  Receive Date: 20200617
  Receipt Date: 20200617
  Transmission Date: 20200714
  Serious: Yes (Hospitalization)
  Sender: FDA-Public Use
  Company Number: None

PATIENT
  Age: 54 Year
  Sex: Female

DRUGS (1)
  1. PIQRAY [Suspect]
     Active Substance: ALPELISIB
     Route: 048
     Dates: start: 2020

REACTIONS (4)
  - Eating disorder [None]
  - Metastases to ovary [None]
  - Metastases to lymph nodes [None]
  - Vomiting [None]

NARRATIVE: CASE EVENT DATE: 20200609
